FAERS Safety Report 10927128 (Version 1)
Quarter: 2015Q1

REPORT INFORMATION
  Report Type: Spontaneous
  Country: US (occurrence: US)
  Receive Date: 20150318
  Receipt Date: 20150318
  Transmission Date: 20150721
  Serious: No
  Sender: FDA-Public Use
  Company Number: US-GLAXOSMITHKLINE-US2015031802

PATIENT
  Age: 41 Year
  Sex: Female

DRUGS (4)
  1. ADVAIR DISKUS [Suspect]
     Active Substance: FLUTICASONE PROPIONATE\SALMETEROL XINAFOATE
     Indication: COUGH
     Dosage: 1 PUFF(S), SINGLE
     Route: 055
     Dates: start: 20150310
  2. ASPIRIN. [Concomitant]
     Active Substance: ASPIRIN
  3. VITAMIN D [Concomitant]
     Active Substance: CHOLECALCIFEROL
  4. BENICAR [Concomitant]
     Active Substance: OLMESARTAN MEDOXOMIL

REACTIONS (1)
  - Throat irritation [Recovering/Resolving]

NARRATIVE: CASE EVENT DATE: 20150310
